FAERS Safety Report 8272938 (Version 2)
Quarter: 2012Q4

REPORT INFORMATION
  Report Type: 
  Country: US (occurrence: US)
  Receive Date: 20111202
  Receipt Date: 20121213
  Transmission Date: 20130627
  Serious: Yes (Death)
  Sender: FDA-Public Use
  Company Number: US-BAYER-2011-115540

PATIENT
  Age: 53 Year
  Sex: Female

DRUGS (18)
  1. BETASERON [Suspect]
     Indication: MULTIPLE SCLEROSIS
     Dosage: 0.25 mg, QOD
     Route: 058
     Dates: start: 201106, end: 201111
  2. PRO-AIR [Concomitant]
  3. ERGOCALCIFEROL [Concomitant]
  4. FAMOTIDINE [Concomitant]
  5. FERROUS SULFATE [Concomitant]
  6. AMBIEN [Concomitant]
  7. PAXIL [Concomitant]
  8. TRICOR [Concomitant]
  9. NYSTATIN [Concomitant]
  10. LOVENOX [Concomitant]
  11. KEPPRA [Concomitant]
  12. BENADRYL [Concomitant]
  13. WARFARIN SODIUM [Concomitant]
  14. METOPROLOL [Concomitant]
  15. SANTYL [Concomitant]
  16. GABAPENTIN [Concomitant]
  17. TRICLORYL [Concomitant]
  18. BACLOFEN [Concomitant]

REACTIONS (1)
  - Death [Fatal]
